FAERS Safety Report 8182067-0 (Version None)
Quarter: 2012Q1

REPORT INFORMATION
  Report Type: 
  Country: None (occurrence: None)
  Receive Date: 20120302
  Receipt Date: 20120224
  Transmission Date: 20120608
  Serious: Yes (Hospitalization, Disabling, Other)
  Sender: FDA-Public Use
  Company Number: US-MERCK-1201USA02537

PATIENT
  Age: 59 Year
  Sex: Female
  Weight: 59 kg

DRUGS (7)
  1. FOSAMAX PLUS D [Suspect]
     Indication: OSTEOPOROSIS
     Route: 048
  2. OMEGA-3 MARINE TRIGLYCERIDES [Concomitant]
     Route: 065
  3. FOSAMAX [Suspect]
     Indication: OSTEOPOROSIS
     Route: 048
     Dates: start: 20040305, end: 20080422
  4. FOSAMAX [Suspect]
     Indication: OSTEOPENIA
     Route: 048
     Dates: start: 20040305, end: 20080422
  5. VITAMIN D (UNSPECIFIED) [Concomitant]
     Route: 065
  6. CALCIUM (UNSPECIFIED) [Concomitant]
     Route: 065
  7. ALENDRONATE SODIUM [Suspect]
     Route: 048
     Dates: start: 20080717, end: 20080901

REACTIONS (13)
  - FALL [None]
  - MYOCARDIAL INFARCTION [None]
  - FEMUR FRACTURE [None]
  - URINARY TRACT INFECTION [None]
  - GASTROOESOPHAGEAL REFLUX DISEASE [None]
  - ARTHROPATHY [None]
  - DEVICE FAILURE [None]
  - ROAD TRAFFIC ACCIDENT [None]
  - HYPOTHYROIDISM [None]
  - BONE DENSITY DECREASED [None]
  - HEAD INJURY [None]
  - TACHYCARDIA [None]
  - PAIN IN EXTREMITY [None]
